FAERS Safety Report 13284612 (Version 2)
Quarter: 2017Q4

REPORT INFORMATION
  Report Type: Spontaneous
  Country: JP (occurrence: JP)
  Receive Date: 20170301
  Receipt Date: 20171207
  Transmission Date: 20180320
  Serious: Yes (Death, Hospitalization)
  Sender: FDA-Public Use
  Company Number: JP-EISAI MEDICAL RESEARCH-EC-2017-025365

PATIENT
  Age: 69 Year
  Sex: Female

DRUGS (2)
  1. WARFARIN [Concomitant]
     Active Substance: WARFARIN
     Indication: EMBOLISM
     Dosage: UNKNOWN
     Route: 048
     Dates: end: 20170221
  2. LENVIMA [Suspect]
     Active Substance: LENVATINIB
     Indication: ANAPLASTIC THYROID CANCER
     Route: 048
     Dates: start: 20161017, end: 20170221

REACTIONS (1)
  - Rectal perforation [Recovering/Resolving]

NARRATIVE: CASE EVENT DATE: 20170215
